FAERS Safety Report 13903797 (Version 1)
Quarter: 2017Q3

REPORT INFORMATION
  Report Type: Not Available
  Country: CO (occurrence: CO)
  Receive Date: 20170824
  Receipt Date: 20170824
  Transmission Date: 20171127
  Serious: Yes (Other)
  Sender: FDA-Public Use
  Company Number: CO-PARAGONBIOTECK-2017-CO-000009

PATIENT
  Age: 28 Day
  Sex: Male
  Weight: 1.3 kg

DRUGS (3)
  1. PROPARACAINE [Suspect]
     Active Substance: PROPARACAINE
     Dosage: 1 DROP ONCE IN EACH EYE
  2. TROPICAMIDE. [Suspect]
     Active Substance: TROPICAMIDE
     Dosage: 1 DROP TWICE
  3. PHENYLEPHRINE HYDROCHLORIDE OPHTHALMIC SOLUTION (NON-SPECIFIC) [Suspect]
     Active Substance: PHENYLEPHRINE HYDROCHLORIDE
     Dosage: 1 DROP TWICE

REACTIONS (4)
  - Abdominal distension [Unknown]
  - Selective eating disorder [Unknown]
  - Periorbital oedema [Unknown]
  - Pallor [Recovered/Resolved]
